FAERS Safety Report 11335947 (Version 4)
Quarter: 2016Q4

REPORT INFORMATION
  Report Type: Report from Study
  Country: JP (occurrence: JP)
  Receive Date: 20150804
  Receipt Date: 20161215
  Transmission Date: 20170206
  Serious: Yes (Hospitalization, Other)
  Sender: FDA-Public Use
  Company Number: JP-ASTELLAS-2015JP014495AA

PATIENT
  Age: 67 Year
  Sex: Male

DRUGS (16)
  1. URSO [Concomitant]
     Active Substance: URSODIOL
     Indication: PRODUCT USED FOR UNKNOWN INDICATION
     Dosage: 50 MG, THRICE DAILY, AFTER BREAKFAST/LUNCH/DINNER
     Route: 065
  2. LANTUS [Concomitant]
     Active Substance: INSULIN GLARGINE
     Indication: PRODUCT USED FOR UNKNOWN INDICATION
     Route: 058
  3. ENZALUTAMIDE [Suspect]
     Active Substance: ENZALUTAMIDE
     Indication: HORMONE-REFRACTORY PROSTATE CANCER
     Route: 048
     Dates: start: 20150106, end: 20150203
  4. GLYCYRON                           /00466401/ [Concomitant]
     Indication: PRODUCT USED FOR UNKNOWN INDICATION
     Dosage: 1 DF, THRICE DAILY, AFTER BREAKFAST/LUNCH/DINNER
     Route: 065
  5. ROCALTROL [Concomitant]
     Active Substance: CALCITRIOL
     Indication: PRODUCT USED FOR UNKNOWN INDICATION
     Dosage: 1.0 ?G, ONCE DAILY, AFTER BREAKFAST
     Route: 065
  6. TANKARU [Concomitant]
     Indication: PRODUCT USED FOR UNKNOWN INDICATION
     Dosage: 1000 MG, THRICE DAILY, AFTER BREAKFAST/LUNCH/DINNER
     Route: 065
  7. ENZALUTAMIDE [Suspect]
     Active Substance: ENZALUTAMIDE
     Route: 048
     Dates: start: 20150204, end: 20150303
  8. SENNOSIDE                          /00571901/ [Concomitant]
     Active Substance: SENNOSIDES A AND B
     Indication: CONSTIPATION
     Dosage: 24 MG, WHEN CONSTIPATED
     Route: 065
  9. TRAMAL [Concomitant]
     Active Substance: TRAMADOL
     Indication: PRODUCT USED FOR UNKNOWN INDICATION
     Dosage: 25 MG, 4 TIMES DAILY, AFTER EVERY MEAL/BEFORE BEDTIME
     Route: 065
  10. TRAMAL [Concomitant]
     Active Substance: TRAMADOL
     Dosage: 25 MG, WHEN ACHING
     Route: 065
  11. CELECOX [Concomitant]
     Active Substance: CELECOXIB
     Indication: PRODUCT USED FOR UNKNOWN INDICATION
     Dosage: 100 MG, TWICE DAILY, AFTER BREAKFAST/DINNER
     Route: 065
  12. HUMALOG [Concomitant]
     Active Substance: INSULIN LISPRO
     Indication: PRODUCT USED FOR UNKNOWN INDICATION
     Dosage: BEFORE BREAKFAST 24 IU, BEFORE LUNCH 12 IU, BEFORE DINNER 12 IU, THRICE DAILY
     Route: 065
  13. ENZALUTAMIDE [Suspect]
     Active Substance: ENZALUTAMIDE
     Route: 048
     Dates: start: 20150304, end: 20150609
  14. LYRICA [Concomitant]
     Active Substance: PREGABALIN
     Indication: PRODUCT USED FOR UNKNOWN INDICATION
     Dosage: 75 MG, TWICE DAILY, AFTER BREAKFAST/DINNER
     Route: 065
  15. NEXIUM [Concomitant]
     Active Substance: ESOMEPRAZOLE MAGNESIUM
     Indication: PRODUCT USED FOR UNKNOWN INDICATION
     Dosage: 10 MG, ONCE DAILY, AFTER BREAKFAST
     Route: 065
  16. PICOSULFATE [Concomitant]
     Active Substance: SODIUM PICOSULFATE
     Indication: CONSTIPATION
     Dosage: 10 DROPS, WHEN CONSTIPATED
     Route: 065

REACTIONS (3)
  - Intentional product use issue [Unknown]
  - Decreased appetite [Recovering/Resolving]
  - Malaise [Recovering/Resolving]

NARRATIVE: CASE EVENT DATE: 20150430
